FAERS Safety Report 19882573 (Version 1)
Quarter: 2021Q3

REPORT INFORMATION
  Report Type: Report from Study
  Country: CN (occurrence: CN)
  Receive Date: 20210925
  Receipt Date: 20210925
  Transmission Date: 20211014
  Serious: Yes (Other)
  Sender: FDA-Public Use
  Company Number: NVSC2021CN214720

PATIENT
  Age: 40 Year
  Sex: Female

DRUGS (1)
  1. LESCOL [Suspect]
     Active Substance: FLUVASTATIN SODIUM
     Indication: PRODUCT USED FOR UNKNOWN INDICATION
     Dosage: 2 PRESCRIPTION MEDICATIONS PER WEEK FOR HEART RELATED HEALTH PROBLEMS AND 2 PER WEEK FOR
     Route: 065

REACTIONS (3)
  - Transient ischaemic attack [Unknown]
  - Product dose omission issue [Unknown]
  - Drug ineffective [Unknown]
